FAERS Safety Report 18889732 (Version 5)
Quarter: 2022Q4

REPORT INFORMATION
  Report Type: Report from Study
  Country: US (occurrence: US)
  Receive Date: 20210213
  Receipt Date: 20221018
  Transmission Date: 20230113
  Serious: Yes (Hospitalization)
  Sender: FDA-Public Use
  Company Number: US-TAKEDA-US201924448

PATIENT
  Age: 68 Year
  Sex: Female

DRUGS (1)
  1. HUMAN IMMUNOGLOBULIN G [Suspect]
     Active Substance: HUMAN IMMUNOGLOBULIN G
     Indication: Primary immunodeficiency syndrome
     Dosage: 12 GRAM, 2/WEEK
     Route: 065

REACTIONS (12)
  - COVID-19 [Unknown]
  - Infusion site pain [Unknown]
  - Sinusitis [Unknown]
  - Bronchitis [Unknown]
  - Lung disorder [Unknown]
  - Fatigue [Unknown]
  - Fall [Unknown]
  - Therapy interrupted [Unknown]
  - Back pain [Unknown]
  - Muscle strain [Unknown]
  - Osteoporosis [Unknown]
  - Insurance issue [Unknown]

NARRATIVE: CASE EVENT DATE: 20190725
